FAERS Safety Report 6153195-6 (Version None)
Quarter: 2009Q2

REPORT INFORMATION
  Report Type: 
  Country: None (occurrence: None)
  Receive Date: 20090413
  Receipt Date: 20090401
  Transmission Date: 20091009
  Serious: Yes (Other)
  Sender: FDA-Public Use
  Company Number: PHHY2009BR13472

PATIENT
  Age: 80 Year
  Sex: Male

DRUGS (2)
  1. EXELON [Suspect]
     Dosage: 9 MG/5CM2
     Route: 062
  2. EXELON [Suspect]
     Dosage: 18MG/10CM2
     Route: 062

REACTIONS (2)
  - ILLUSION [None]
  - LACK OF SPONTANEOUS SPEECH [None]
